FAERS Safety Report 6856490-8 (Version None)
Quarter: 2010Q3

REPORT INFORMATION
  Report Type: 
  Country: None (occurrence: None)
  Receive Date: 20100719
  Receipt Date: 20100708
  Transmission Date: 20110219
  Serious: Yes (Hospitalization)
  Sender: FDA-Public Use
  Company Number: FR-ASTRAZENECA-2010SE32196

PATIENT
  Age: 18 Year
  Sex: Male

DRUGS (5)
  1. OMEPRAZOLE [Suspect]
     Route: 048
     Dates: start: 20100531, end: 20100607
  2. BIPROFENID [Suspect]
     Indication: JOINT SPRAIN
     Route: 048
     Dates: start: 20100531, end: 20100605
  3. INNOHEP [Concomitant]
     Route: 058
     Dates: start: 20100531, end: 20100605
  4. TOPALGIC [Concomitant]
     Route: 065
  5. DAFALGAN [Concomitant]
     Route: 065

REACTIONS (2)
  - RENAL FAILURE ACUTE [None]
  - TUBULOINTERSTITIAL NEPHRITIS [None]
